FAERS Safety Report 16070966 (Version 1)
Quarter: 2019Q1

REPORT INFORMATION
  Report Type: Spontaneous
  Country: US (occurrence: US)
  Receive Date: 20190212
  Receipt Date: 20190212
  Transmission Date: 20190418
  Serious: Yes (Other)
  Sender: FDA-Public Use
  Company Number: None

PATIENT
  Age: 69 Year
  Sex: Male
  Weight: 68.04 kg

DRUGS (52)
  1. DULOXETINE HCL 30MG [Concomitant]
  2. FLOMAX 04MG [Concomitant]
  3. PREVACID SOLU TAB 30MG [Concomitant]
  4. ASPIRIN 81 MG [Concomitant]
     Active Substance: ASPIRIN
  5. CLOPIDOGREL [Concomitant]
     Active Substance: CLOPIDOGREL BISULFATE
  6. LIDOCAINE. [Concomitant]
     Active Substance: LIDOCAINE
  7. NITROSTAT [Concomitant]
     Active Substance: NITROGLYCERIN
  8. MAGNESIUM OXIDE. [Concomitant]
     Active Substance: MAGNESIUM OXIDE
  9. AMBIEN [Concomitant]
     Active Substance: ZOLPIDEM TARTRATE
  10. ALPRAZOLAM 0.25MG [Concomitant]
     Active Substance: ALPRAZOLAM
  11. REGULAR INSULIN (HUMALINB) LOW DOSE [Concomitant]
  12. OMEGA 3 100MG [Concomitant]
  13. POLYETHYLENE GLYCOL 17GM [Concomitant]
  14. PROAIR HFA 108 (90 BASE) [Concomitant]
  15. JANUVIA [Concomitant]
     Active Substance: SITAGLIPTIN PHOSPHATE
  16. RAMIPRIL 10MG [Concomitant]
     Active Substance: RAMIPRIL
  17. PLAVIX [Concomitant]
     Active Substance: CLOPIDOGREL BISULFATE
  18. LIDODERM [Concomitant]
     Active Substance: LIDOCAINE
  19. TYLENOL [Concomitant]
     Active Substance: ACETAMINOPHEN
  20. FLUTICASONE PROPIONATE SPRAY [Concomitant]
  21. LANTUS 10 UNITS [Concomitant]
  22. LISINOPRIL 10 MG [Concomitant]
     Active Substance: LISINOPRIL
  23. ATORVASTATIN 40MG [Concomitant]
     Active Substance: ATORVASTATIN
  24. HYDRALAZINE 25MG [Concomitant]
     Active Substance: HYDRALAZINE HYDROCHLORIDE
  25. VITAMIN D [Concomitant]
     Active Substance: CHOLECALCIFEROL
  26. NAMENDA 5MG [Concomitant]
  27. DULOXETINE HCL 30MG [Concomitant]
  28. FLUTICASONE PROPIONATE 50MG [Concomitant]
  29. RESTASIS [Concomitant]
     Active Substance: CYCLOSPORINE
  30. ALPRAZOLAM 0.25MG [Concomitant]
     Active Substance: ALPRAZOLAM
  31. ESOMEPRAZOLE MAGDR 40MG [Concomitant]
  32. FOLIC ACID 1MG [Concomitant]
     Active Substance: FOLIC ACID
  33. METFORMIN 500MG [Concomitant]
     Active Substance: METFORMIN HYDROCHLORIDE
  34. NYSTATIN 100.000 UNITS/GM OINTMENT [Concomitant]
  35. LINZESS 290MCG [Concomitant]
  36. OMEGA 3 ACIDETHYESTERS [Concomitant]
  37. LEVOCETIRIZINE DIHYOROCHORIDE 5 MG [Concomitant]
  38. CYCLOSPORINE. [Concomitant]
     Active Substance: CYCLOSPORINE
  39. JARDIANCE [Suspect]
     Active Substance: EMPAGLIFLOZIN
     Indication: TYPE 2 DIABETES MELLITUS
     Dosage: ?          QUANTITY:30 UNK - UNKNOWN;?
     Route: 048
     Dates: start: 20181211, end: 20190103
  40. OMEPRAZOLE 20MG [Concomitant]
     Active Substance: OMEPRAZOLE
  41. DONEPEZIL HCL 10MG [Concomitant]
  42. LOVAZA [Concomitant]
     Active Substance: OMEGA-3-ACID ETHYL ESTERS
  43. LIPITOR [Concomitant]
     Active Substance: ATORVASTATIN CALCIUM
  44. DULOXETINEDR 30MG [Concomitant]
  45. FUROSEMIDE 40MG [Concomitant]
     Active Substance: FUROSEMIDE
  46. POTASSIUM CHLORIDE 40MEQ [Concomitant]
  47. CITALOPRAM HYDROBROMIDE 40MG [Concomitant]
  48. AMLODIPINE BESYLATE. [Concomitant]
     Active Substance: AMLODIPINE BESYLATE
  49. JARDIANCE [Concomitant]
     Active Substance: EMPAGLIFLOZIN
  50. CARVEDILOL 6.25MG [Concomitant]
     Active Substance: CARVEDILOL
  51. FERROUS SULFATE 325MG [Concomitant]
     Active Substance: FERROUS SULFATE
  52. LEVALBUTEROL 0.63MG [Concomitant]

REACTIONS (2)
  - Pruritus genital [None]
  - Myocardial infarction [None]
